FAERS Safety Report 8204795-0 (Version None)
Quarter: 2012Q1

REPORT INFORMATION
  Report Type: 
  Country: None (occurrence: None)
  Receive Date: 20120313
  Receipt Date: 20120305
  Transmission Date: 20120608
  Serious: Yes (Hospitalization, Other)
  Sender: FDA-Public Use
  Company Number: US-PFIZER INC-2012015230

PATIENT
  Sex: Female
  Weight: 87.528 kg

DRUGS (9)
  1. LIPITOR [Suspect]
     Dosage: UNK
  2. PROTONIX [Suspect]
     Dosage: UNK
  3. PREMARIN [Suspect]
     Dosage: UNK
  4. GLUCOTROL [Suspect]
     Dosage: UNK
  5. LOPID [Suspect]
     Dosage: 600 MG, 2X/DAY
     Route: 048
  6. GLUCOTROL [Suspect]
     Dosage: 5 MG, 1X/DAY
     Route: 048
  7. CELEBREX [Suspect]
     Dosage: 200 MG, 1X/DAY
     Route: 048
  8. PREMARIN [Suspect]
     Dosage: 0.625 MG, 1X/DAY  (1 TABLET ONCE A DAY)
  9. LOPID [Suspect]
     Dosage: UNK

REACTIONS (1)
  - TRANSIENT ISCHAEMIC ATTACK [None]
